FAERS Safety Report 8767821 (Version 1)
Quarter: 2012Q4

REPORT INFORMATION
  Report Type: 
  Country: FR (occurrence: FR)
  Receive Date: 20120905
  Receipt Date: 20120905
  Transmission Date: 20130627
  Serious: Yes (Death, Other)
  Sender: FDA-Public Use
  Company Number: PHHY2012FR075903

PATIENT
  Age: 52 Year
  Sex: Male

DRUGS (4)
  1. CICLOSPORIN [Suspect]
     Indication: GRAFT VERSUS HOST DISEASE
  2. MYCOPHENOLATE MOFETIL [Suspect]
     Indication: GRAFT VERSUS HOST DISEASE
  3. ANTITHYMOCYTE IMMUNOGLOBULIN (RABBIT) [Suspect]
     Indication: GRAFT VERSUS HOST DISEASE
  4. PEGYLATED INTERFERON ALFA-2A [Concomitant]
     Indication: ACUTE MYELOID LEUKAEMIA

REACTIONS (5)
  - Acute respiratory failure [Fatal]
  - Bronchopulmonary aspergillosis [Fatal]
  - Gastric haemorrhage [Unknown]
  - Graft versus host disease [Unknown]
  - Diarrhoea [Unknown]
